FAERS Safety Report 8957126 (Version 1)
Quarter: 2012Q4

REPORT INFORMATION
  Report Type: 
  Country: GB (occurrence: GB)
  Receive Date: 20121210
  Receipt Date: 20121210
  Transmission Date: 20130627
  Serious: Yes (Other)
  Sender: FDA-Public Use
  Company Number: PHHY2012GB112778

PATIENT
  Age: 52 Year
  Sex: Female

DRUGS (5)
  1. GABAPENTIN [Suspect]
     Indication: NECK PAIN
     Dosage: 900 mg
     Route: 048
     Dates: start: 20121113
  2. MACROGOL [Concomitant]
  3. NAPROXEN [Concomitant]
  4. OMEPRAZOLE [Concomitant]
  5. TRAMADOL [Concomitant]

REACTIONS (2)
  - Euphoric mood [Recovering/Resolving]
  - Confusional state [Recovering/Resolving]
